FAERS Safety Report 25176825 (Version 1)
Quarter: 2025Q2

REPORT INFORMATION
  Report Type: Spontaneous
  Country: US (occurrence: US)
  Receive Date: 20250409
  Receipt Date: 20250409
  Transmission Date: 20250716
  Serious: No
  Sender: CSL BEHRING
  Company Number: US-BEH-2025201086

PATIENT
  Sex: Female

DRUGS (10)
  1. HIZENTRA [Suspect]
     Active Substance: HUMAN IMMUNOGLOBULIN G
     Dosage: 1 GM/5ML, QW (INFUSE 9 GRAMS (45ML) SUBCUTANEOUSLY ONCE EVERY WEEK VIA FREEDOM PUMP)
     Route: 058
     Dates: start: 20250306
  2. HIZENTRA [Suspect]
     Active Substance: HUMAN IMMUNOGLOBULIN G
     Dosage: 4 GM/20ML, QW (INFUSE 9 GRAMS (45ML) SUBCUTANEOUSLY ONCE EVERY WEEK VIA FREEDOM PUMP)
     Route: 058
     Dates: start: 20250306
  3. AMLODIPINE [Concomitant]
     Active Substance: AMLODIPINE BESYLATE
  4. BUPROPION [Concomitant]
     Active Substance: BUPROPION
  5. CLONAZEPAM [Concomitant]
     Active Substance: CLONAZEPAM
  6. IRON [Concomitant]
     Active Substance: IRON
  7. LEVOTHYROXINE [Concomitant]
     Active Substance: LEVOTHYROXINE
  8. PANTOPRAZOLE [Concomitant]
     Active Substance: PANTOPRAZOLE
  9. SERTRALINE [Concomitant]
     Active Substance: SERTRALINE HYDROCHLORIDE
  10. VITAMIN B12 [Concomitant]
     Active Substance: CYANOCOBALAMIN

REACTIONS (2)
  - Infusion site swelling [Recovered/Resolved]
  - Gastrointestinal pain [Unknown]
